FAERS Safety Report 12178439 (Version 1)
Quarter: 2016Q1

REPORT INFORMATION
  Report Type: Spontaneous
  Country: US (occurrence: None)
  Receive Date: 20160314
  Receipt Date: 20160314
  Transmission Date: 20160526
  Serious: No
  Sender: FDA-Public Use
  Company Number: None

PATIENT
  Age: 58 Year
  Sex: Female
  Weight: 77.11 kg

DRUGS (1)
  1. XIGDUO XR [Suspect]
     Active Substance: DAPAGLIFLOZIN PROPANEDIOL\METFORMIN HYDROCHLORIDE
     Indication: TYPE 2 DIABETES MELLITUS
     Dosage: TAKEN BY MOUTH
     Dates: start: 20160313, end: 20160313

REACTIONS (4)
  - Dizziness [None]
  - Gastrointestinal viral infection [None]
  - Vomiting [None]
  - Nausea [None]

NARRATIVE: CASE EVENT DATE: 20160302
